FAERS Safety Report 20094278 (Version 3)
Quarter: 2022Q3

REPORT INFORMATION
  Report Type: Spontaneous
  Country: US (occurrence: US)
  Receive Date: 20211122
  Receipt Date: 20220713
  Transmission Date: 20221027
  Serious: No
  Sender: FDA-Public Use
  Company Number: US-AMGEN-USASP2021175720

PATIENT
  Age: 75 Year
  Sex: Male

DRUGS (1)
  1. NEULASTA [Suspect]
     Active Substance: PEGFILGRASTIM
     Indication: Neutropenia
     Dosage: UNK UNK, AFTER CHEMO
     Route: 065

REACTIONS (2)
  - Wrong technique in product usage process [Unknown]
  - Bone pain [Unknown]

NARRATIVE: CASE EVENT DATE: 20211101
